FAERS Safety Report 14337808 (Version 3)
Quarter: 2018Q2

REPORT INFORMATION
  Report Type: Spontaneous
  Country: FI (occurrence: FI)
  Receive Date: 20171229
  Receipt Date: 20180504
  Transmission Date: 20180711
  Serious: Yes (Death, Hospitalization, Other)
  Sender: FDA-Public Use
  Company Number: FI-MYLANLABS-2017M1082861

PATIENT
  Age: 74 Year
  Sex: Male

DRUGS (1)
  1. METHOTREXATE. [Suspect]
     Active Substance: METHOTREXATE
     Indication: PRODUCT USED FOR UNKNOWN INDICATION
     Dosage: 5 MG ON TUESDAYS
     Route: 065

REACTIONS (10)
  - Cardiac failure [Recovering/Resolving]
  - General physical health deterioration [Unknown]
  - Accidental overdose [Unknown]
  - Neutropenia [Unknown]
  - Anaemia [Unknown]
  - Transcription medication error [Unknown]
  - Sepsis [Fatal]
  - Infection [Unknown]
  - Drug prescribing error [Fatal]
  - Inappropriate schedule of drug administration [Unknown]
